FAERS Safety Report 5297728-0 (Version None)
Quarter: 2007Q2

REPORT INFORMATION
  Report Type: 
  Country: None (occurrence: None)
  Receive Date: 20070406
  Receipt Date: 20070319
  Transmission Date: 20071010
  Serious: Yes (Hospitalization)
  Sender: FDA-Public Use
  Company Number: 6031260

PATIENT
  Age: 30 Year
  Sex: Male

DRUGS (2)
  1. CLOZAPINE [Suspect]
     Indication: SCHIZOPHRENIA
     Dosage: SEE IMAGE
  2. SERTRALINE [Suspect]

REACTIONS (4)
  - ABDOMINAL DISTENSION [None]
  - ERUCTATION [None]
  - FLATULENCE [None]
  - ILEUS PARALYTIC [None]
